FAERS Safety Report 11110247 (Version 2)
Quarter: 2015Q2

REPORT INFORMATION
  Report Type: Report from Study
  Country: PL (occurrence: PL)
  Receive Date: 20150513
  Receipt Date: 20150519
  Transmission Date: 20150821
  Serious: Yes (Death, Life-Threatening, Other)
  Sender: FDA-Public Use
  Company Number: PL-GLAXOSMITHKLINE-PL2015GSK058728

PATIENT
  Age: 52 Year
  Sex: Male
  Weight: 92 kg

DRUGS (6)
  1. IFOSFAMIDE. [Suspect]
     Active Substance: IFOSFAMIDE
     Indication: LYMPHOMA
     Dosage: 3000 MG, QD
     Route: 042
     Dates: start: 20150403, end: 20150407
  2. ETOPOSIDE. [Suspect]
     Active Substance: ETOPOSIDE
     Indication: LYMPHOMA
     Dosage: 120 MG, QD
     Route: 042
     Dates: start: 20150403, end: 20150407
  3. MESNA. [Suspect]
     Active Substance: MESNA
     Indication: LYMPHOMA
     Dosage: 3000 MG, UNK
     Route: 042
     Dates: start: 20150403, end: 20150407
  4. VANKOMYCIN [Concomitant]
     Indication: PYREXIA
     Dosage: 1 G, BID
     Route: 042
     Dates: start: 20150415, end: 20150422
  5. CYTARABINE. [Suspect]
     Active Substance: CYTARABINE
     Indication: LYMPHOMA
     Dosage: 4000 MG, UNK
     Route: 042
     Dates: start: 20150403
  6. OFATUMUMAB [Suspect]
     Active Substance: OFATUMUMAB
     Indication: LYMPHOMA
     Dosage: 1000 MG, UNK
     Route: 042
     Dates: start: 20150402

REACTIONS (2)
  - Pneumonia [Fatal]
  - Pyrexia [Fatal]

NARRATIVE: CASE EVENT DATE: 20150420
